FAERS Safety Report 8733171 (Version 4)
Quarter: 2013Q2

REPORT INFORMATION
  Report Type: Spontaneous
  Country: CO (occurrence: CO)
  Receive Date: 20120821
  Receipt Date: 20130430
  Transmission Date: 20140414
  Serious: Yes (Other)
  Sender: FDA-Public Use
  Company Number: CO-BRISTOL-MYERS SQUIBB COMPANY-16850091

PATIENT
  Age: 67 Year
  Sex: Female

DRUGS (5)
  1. TAXOL [Suspect]
     Indication: BREAST CANCER
     Dosage: 300MG IN 3 HOURS INFUSION.?INTER ON 8AUG12?RESTARTD START TREATMENT:10-JUL-2012
     Route: 042
     Dates: start: 20120710
  2. DEXAMETHASONE [Concomitant]
     Route: 042
  3. ONDANSETRON [Concomitant]
     Route: 042
  4. DIPHENHYDRAMINE [Concomitant]
  5. RANITIDINE [Concomitant]
     Dosage: TREATMENT EV

REACTIONS (4)
  - Chest discomfort [Recovered/Resolved]
  - Erythema [Recovered/Resolved]
  - Neuropathy peripheral [Unknown]
  - Bone pain [Recovered/Resolved]
